FAERS Safety Report 9055164 (Version 2)
Quarter: 2013Q2

REPORT INFORMATION
  Report Type: Spontaneous
  Country: US (occurrence: US)
  Receive Date: 20130206
  Receipt Date: 20130403
  Transmission Date: 20140414
  Serious: Yes (Death)
  Sender: FDA-Public Use
  Company Number: US-JNJFOC-20130202253

PATIENT
  Sex: 0

DRUGS (6)
  1. DOXORUBICIN [Suspect]
     Indication: B-CELL LYMPHOMA
     Dosage: SIX CYCLES EVERY 21 DAYS (124 MG)
     Route: 042
  2. CYCLOPHOSPHAMIDE [Suspect]
     Indication: B-CELL LYMPHOMA
     Dosage: SIX CYCLES EVERY 21 DAYS
     Route: 042
  3. VINCRISTINE [Suspect]
     Indication: B-CELL LYMPHOMA
     Dosage: SIX CYCLES EVERY 21 DAYS
     Route: 042
  4. PREDNISONE [Suspect]
     Indication: B-CELL LYMPHOMA
     Dosage: SIX CYCLES EVERY 21 DAYS, 5 DAYS EACH CYCLE
     Route: 048
  5. TOSITUMOMAB [Suspect]
     Indication: B-CELL LYMPHOMA
     Dosage: 450 MG TOSITUMOMAB FOLLOWED BY 35 MG OF IODINE I-131 TOSITUMOMAB LABELED WITH ENOUGH IODINE I-131
     Route: 042
  6. TOSITUMOMAB-IODINE 131 [Suspect]
     Indication: B-CELL LYMPHOMA
     Dosage: 0.75 GY WHOLE-BODY DOSE (0.65 GY IF THE PLATELET COUNT WAS 100,000-149,999/UL) ON DAY 134 AND 141,
     Route: 065

REACTIONS (1)
  - Respiratory failure [Fatal]
